FAERS Safety Report 24299508 (Version 3)
Quarter: 2024Q3

REPORT INFORMATION
  Report Type: Spontaneous
  Country: SE (occurrence: SE)
  Receive Date: 20240909
  Receipt Date: 20240923
  Transmission Date: 20241017
  Serious: Yes (Other)
  Sender: PFIZER
  Company Number: SE-PFIZER INC-202400252594

PATIENT
  Age: 18 Year
  Sex: Female
  Weight: 70 kg

DRUGS (4)
  1. RIMEGEPANT [Suspect]
     Active Substance: RIMEGEPANT
     Indication: Migraine
     Dosage: 1 DF, SINGLE (UPON MIGRAINE)
     Route: 048
     Dates: start: 20240908
  2. METOPROLOL [Concomitant]
     Active Substance: METOPROLOL
     Indication: Migraine
     Dosage: 50 MG, 1X/DAY
  3. ACETAMINOPHEN [Concomitant]
     Active Substance: ACETAMINOPHEN
     Indication: Migraine
     Dosage: 1 G (APPROXIMATELY 2 PER WEEK)
  4. NAPROXEN [Concomitant]
     Active Substance: NAPROXEN
     Indication: Migraine
     Dosage: 500 MG (APPROXIMATELY 2 PER WEEK)

REACTIONS (2)
  - Syncope [Recovered/Resolved]
  - Nausea [Recovered/Resolved]

NARRATIVE: CASE EVENT DATE: 20240908
